FAERS Safety Report 7048401-X (Version None)
Quarter: 2010Q4

REPORT INFORMATION
  Report Type: 
  Country: None (occurrence: None)
  Receive Date: 20101014
  Receipt Date: 20101014
  Transmission Date: 20110411
  Serious: Yes (Other)
  Sender: FDA-Public Use
  Company Number: None

PATIENT
  Age: 77 Year
  Sex: Male
  Weight: 58.9676 kg

DRUGS (2)
  1. XELODA [Suspect]
     Dosage: 1500 MG 2X'S DAILY  PO; 1000MG 2X-DAILY PO
     Route: 048
     Dates: start: 20100722, end: 20100903
  2. XELODA [Suspect]
     Dosage: 1500 MG 2X'S DAILY  PO; 1000MG 2X-DAILY PO
     Route: 048
     Dates: start: 20100824, end: 20100903

REACTIONS (4)
  - GASTRIC HAEMORRHAGE [None]
  - GASTRITIS EROSIVE [None]
  - INCORRECT DOSE ADMINISTERED [None]
  - NAUSEA [None]
